FAERS Safety Report 18145672 (Version 1)
Quarter: 2020Q3

REPORT INFORMATION
  Report Type: Spontaneous
  Country: DK (occurrence: DK)
  Receive Date: 20200813
  Receipt Date: 20200813
  Transmission Date: 20201103
  Serious: Yes (Other)
  Sender: FDA-Public Use
  Company Number: DK-TEVA-2020-DK-1813111

PATIENT
  Age: 71 Year
  Sex: Male

DRUGS (1)
  1. PRAMIPEXOL [PRAMIPEXOLE] [Suspect]
     Active Substance: PRAMIPEXOLE
     Indication: RESTLESS LEGS SYNDROME
     Dosage: 0.26 MG
     Route: 048
     Dates: start: 2011, end: 201909

REACTIONS (2)
  - Sexually inappropriate behaviour [Unknown]
  - Paedophilia [Unknown]

NARRATIVE: CASE EVENT DATE: 2016
